FAERS Safety Report 12668604 (Version 1)
Quarter: 2016Q3

REPORT INFORMATION
  Report Type: Spontaneous
  Country: US (occurrence: US)
  Receive Date: 20160819
  Receipt Date: 20160819
  Transmission Date: 20161109
  Serious: No
  Sender: FDA-Public Use
  Company Number: US-BAYER-2016-159386

PATIENT
  Age: 12 Year
  Sex: Female

DRUGS (2)
  1. SORAFENIB (RAF KINASE INHIBITOR) [Suspect]
     Active Substance: SORAFENIB
     Indication: ALVEOLAR SOFT PART SARCOMA
     Dosage: 400 MG, BID
     Route: 048
     Dates: start: 201006
  2. SORAFENIB (RAF KINASE INHIBITOR) [Suspect]
     Active Substance: SORAFENIB
     Indication: ALVEOLAR SOFT PART SARCOMA
     Dosage: 200 MG, BID
     Route: 048
     Dates: end: 201204

REACTIONS (4)
  - Diarrhoea [None]
  - Rash [None]
  - Alopecia totalis [None]
  - Abdominal pain [None]
